FAERS Safety Report 4849630-3 (Version None)
Quarter: 2005Q4

REPORT INFORMATION
  Report Type: 
  Country: None (occurrence: None)
  Receive Date: 20051115
  Receipt Date: 20050929
  Transmission Date: 20060501
  Serious: No
  Sender: FDA-Public Use
  Company Number: S05-USA-04528-01

PATIENT
  Age: 85 Year
  Sex: Male

DRUGS (12)
  1. NAMENDA [Suspect]
     Indication: DEMENTIA ALZHEIMER'S TYPE
     Dosage: 5 MG QD PO
     Route: 048
     Dates: start: 20050915, end: 20050921
  2. NAMENDA [Suspect]
     Indication: DEMENTIA ALZHEIMER'S TYPE
     Dosage: 5 MG BID PO
     Route: 048
     Dates: start: 20050922, end: 20050928
  3. NAMENDA [Suspect]
     Indication: DEMENTIA ALZHEIMER'S TYPE
     Dosage: 15 MG QD PO
     Route: 048
     Dates: start: 20050929
  4. AMIODARONE [Concomitant]
  5. AVODART [Concomitant]
  6. COUMADIN [Concomitant]
  7. LASIX [Concomitant]
  8. KLOR-CON (POTASSIUM) [Concomitant]
  9. FLOMAX [Concomitant]
  10. TOPROL-XL [Concomitant]
  11. ZOCOR [Concomitant]
  12. SEROQUEL [Concomitant]

REACTIONS (2)
  - BLOOD PRESSURE DECREASED [None]
  - FALL [None]
